FAERS Safety Report 15234202 (Version 1)
Quarter: 2018Q4

REPORT INFORMATION
  Report Type: Report from Study
  Country: IT (occurrence: IT)
  Receive Date: 20180802
  Receipt Date: 20180802
  Transmission Date: 20190204
  Serious: Yes (Other)
  Sender: FDA-Public Use
  Company Number: IT-TEVA-2018-IT-932865

PATIENT
  Age: 36 Year
  Sex: Male

DRUGS (1)
  1. AMOXICILLINA EG 1 G COMPRESSE [Suspect]
     Active Substance: AMOXICILLIN
     Route: 048

REACTIONS (2)
  - Laryngeal oedema [Recovering/Resolving]
  - Urticaria [Recovering/Resolving]

NARRATIVE: CASE EVENT DATE: 20180424
